FAERS Safety Report 25389279 (Version 1)
Quarter: 2025Q2

REPORT INFORMATION
  Report Type: Report from Study
  Country: US (occurrence: US)
  Receive Date: 20250603
  Receipt Date: 20250603
  Transmission Date: 20250717
  Serious: Yes (Other)
  Sender: ROCHE
  Company Number: US-ROCHE-10000280338

PATIENT
  Age: 42 Year
  Sex: Female

DRUGS (28)
  1. XOLAIR [Suspect]
     Active Substance: OMALIZUMAB
     Indication: Chronic spontaneous urticaria
     Dosage: 75 MG; 150 MG PATIENT NEEDS A TOTAL DOSE OF 375MG EVERY 14 DAYS ?DIRECTIONS: INJECT 0.5 MLS (75 MG T
     Route: 058
  2. XOLAIR [Suspect]
     Active Substance: OMALIZUMAB
     Indication: Chronic obstructive pulmonary disease
  3. ASPIRIN [Concomitant]
     Active Substance: ASPIRIN
  4. LIPITOR [Concomitant]
     Active Substance: ATORVASTATIN CALCIUM
  5. BUSPAR [Concomitant]
     Active Substance: BUSPIRONE HYDROCHLORIDE
  6. PREMARIN [Concomitant]
     Active Substance: ESTROGENS, CONJUGATED
  7. CEFIXIME [Concomitant]
     Active Substance: CEFIXIME
  8. DIFLUCAN [Concomitant]
     Active Substance: FLUCONAZOLE
  9. LASIX [Concomitant]
     Active Substance: FUROSEMIDE
  10. TORADOLIN [KETOROLAC] [Concomitant]
  11. LORATADINE [Concomitant]
     Active Substance: LORATADINE
  12. TOPROL XL [Concomitant]
     Active Substance: METOPROLOL SUCCINATE
  13. NITROSTAT [Concomitant]
     Active Substance: NITROGLYCERIN
  14. EFFIENT [Concomitant]
     Active Substance: PRASUGREL HYDROCHLORIDE
  15. LYRICA [Concomitant]
     Active Substance: PREGABALIN
  16. ENTRESTO [Concomitant]
     Active Substance: SACUBITRIL\VALSARTAN
  17. WEGOVY [Concomitant]
     Active Substance: SEMAGLUTIDE
  18. ALDACTONE [Concomitant]
     Active Substance: SPIRONOLACTONE
  19. VENTOLIN HFA [Concomitant]
     Active Substance: ALBUTEROL SULFATE
  20. BUSPAR [Concomitant]
     Active Substance: BUSPIRONE HYDROCHLORIDE
  21. ALBUTEROL [Concomitant]
     Active Substance: ALBUTEROL
  22. XANAX [Concomitant]
     Active Substance: ALPRAZOLAM
  23. LEXAPRO [Concomitant]
     Active Substance: ESCITALOPRAM OXALATE
  24. PIROXICAM [Concomitant]
     Active Substance: PIROXICAM
  25. ZOLOFT [Concomitant]
     Active Substance: SERTRALINE HYDROCHLORIDE
  26. PROZAC [Concomitant]
     Active Substance: FLUOXETINE HYDROCHLORIDE
  27. CELECOXIB [Concomitant]
     Active Substance: CELECOXIB
  28. EPIPEN [Concomitant]
     Active Substance: EPINEPHRINE

REACTIONS (26)
  - Vulvovaginal dryness [Unknown]
  - Heart failure with reduced ejection fraction [Unknown]
  - Sexually transmitted disease [Unknown]
  - Coronary artery occlusion [Unknown]
  - Acute left ventricular failure [Unknown]
  - Hypokalaemia [Unknown]
  - Hyperlipidaemia [Unknown]
  - Ventricular tachycardia [Unknown]
  - Angina unstable [Unknown]
  - Obesity [Unknown]
  - Chest pain [Unknown]
  - Generalised anxiety disorder [Unknown]
  - Gastrooesophageal reflux disease [Unknown]
  - Alanine aminotransferase increased [Unknown]
  - Polycystic ovarian syndrome [Unknown]
  - Lumbar radiculopathy [Unknown]
  - Cervical radiculopathy [Unknown]
  - Arthralgia [Unknown]
  - Hirsutism [Unknown]
  - Ischaemic cardiomyopathy [Unknown]
  - Essential hypertension [Unknown]
  - Menopausal symptoms [Unknown]
  - Gastrooesophageal reflux disease [Unknown]
  - Asthma-chronic obstructive pulmonary disease overlap syndrome [Unknown]
  - Migraine [Unknown]
  - Biliary colic [Unknown]
